FAERS Safety Report 5142787-9 (Version None)
Quarter: 2006Q4

REPORT INFORMATION
  Report Type: 
  Country: None (occurrence: None)
  Receive Date: 20061027
  Receipt Date: 20061013
  Transmission Date: 20070319
  Serious: Yes (Hospitalization, Other)
  Sender: FDA-Public Use
  Company Number: US200511001854

PATIENT
  Age: 44 Year
  Sex: Female
  Weight: 116.1 kg

DRUGS (4)
  1. ZYPREXA [Suspect]
     Indication: SCHIZOPHRENIA
     Dosage: SEE IMAGE
     Route: 048
     Dates: start: 20000601, end: 20040901
  2. SERTRALINE [Concomitant]
  3. METOPROLOL TARTRATE [Concomitant]
  4. PROPRANOLOL [Concomitant]

REACTIONS (7)
  - BLOOD CHOLESTEROL ABNORMAL [None]
  - CARDIAC DISORDER [None]
  - DIABETES MELLITUS NON-INSULIN-DEPENDENT [None]
  - DIABETIC COMPLICATION [None]
  - METABOLIC DISORDER [None]
  - RENAL FAILURE [None]
  - WEIGHT INCREASED [None]
